FAERS Safety Report 10149102 (Version 1)
Quarter: 2014Q2

REPORT INFORMATION
  Report Type: Spontaneous
  Country: US (occurrence: US)
  Receive Date: 20140502
  Receipt Date: 20140502
  Transmission Date: 20141212
  Serious: Yes (Congenital Anomaly, Other)
  Sender: FDA-Public Use
  Company Number: US-JNJFOC-20140417192

PATIENT
  Sex: Female

DRUGS (1)
  1. TOPAMAX [Suspect]
     Indication: EPILEPSY
     Dosage: MOTHER DOSING
     Route: 064

REACTIONS (8)
  - Foetal exposure during pregnancy [Unknown]
  - Craniofacial deformity [Unknown]
  - Hydrocephalus [Unknown]
  - Autism [Unknown]
  - Strabismus [Recovered/Resolved]
  - Stereotypy [Not Recovered/Not Resolved]
  - Staring [Not Recovered/Not Resolved]
  - Developmental delay [Recovering/Resolving]
